FAERS Safety Report 19429897 (Version 1)
Quarter: 2021Q2

REPORT INFORMATION
  Report Type: Spontaneous
  Country: FR (occurrence: FR)
  Receive Date: 20210617
  Receipt Date: 20210617
  Transmission Date: 20210717
  Serious: Yes (Other)
  Sender: FDA-Public Use
  Company Number: FR-MYLANLABS-2021M1035101

PATIENT
  Age: 59 Year
  Sex: Female

DRUGS (3)
  1. METHOTREXATE. [Suspect]
     Active Substance: METHOTREXATE
     Dosage: 10 MILLIGRAM, QW (10 MG, WEEKLY)
     Route: 048
     Dates: start: 19820901
  2. FOLIC ACID. [Concomitant]
     Active Substance: FOLIC ACID
     Dosage: UNK
     Route: 065
  3. METHOTREXATE. [Suspect]
     Active Substance: METHOTREXATE
     Indication: RHEUMATOID ARTHRITIS
     Dosage: 7.5 MILLIGRAM, QW (7.5 MG, WEEKLY)
     Route: 048
     Dates: start: 19820601, end: 19820901

REACTIONS (2)
  - Chronic kidney disease [Not Recovered/Not Resolved]
  - Kidney fibrosis [Not Recovered/Not Resolved]

NARRATIVE: CASE EVENT DATE: 2003
